FAERS Safety Report 8316069 (Version 2)
Quarter: 2013Q1

REPORT INFORMATION
  Report Type: Spontaneous
  Country: US (occurrence: None)
  Receive Date: 20111220
  Receipt Date: 20121228
  Transmission Date: 20140127
  Serious: Yes (Hospitalization, Disabling)
  Sender: FDA-Public Use
  Company Number: JPI-P-018546

PATIENT
  Age: 41 Year
  Sex: Female
  Weight: 60.78 kg

DRUGS (9)
  1. XYREM [Suspect]
     Indication: NARCOLEPSY
     Dosage: (3 GM, 2 IN 1 D)
     Route: 048
     Dates: start: 20080319
  2. XYREM [Suspect]
     Indication: SOMNOLENCE
     Dosage: (3 GM, 2 IN 1 D)
     Route: 048
     Dates: start: 20080319
  3. LEVETIRACETAM [Suspect]
     Indication: PRODUCT USED FOR UNKNOWN INDICATION
     Dosage: 40 MG (40 MG, 1 IN 1 D), ORAL; 80 MG (80 MG, 1 IN 1 D), ORAL; (DOSE LOWERED), ORAL
  4. FLUOXETINE HYDROCHLORIDE [Suspect]
     Indication: DEPRESSION
     Dosage: (40 MG, 1 IN 1 D)
     Route: 048
     Dates: start: 201109, end: 201110
  5. LEVOTHYROXINE SODIUM [Concomitant]
  6. NORETHINDRONE ACETATE [Concomitant]
  7. LEUPROLIDE ACETATE [Concomitant]
  8. ESZOPICLONE [Concomitant]
  9. CABERGOLINE [Concomitant]

REACTIONS (8)
  - Depression [None]
  - Malaise [None]
  - Anxiety [None]
  - Convulsion [None]
  - Abasia [None]
  - Activities of daily living impaired [None]
  - Drug hypersensitivity [None]
  - Adverse event [None]
